FAERS Safety Report 23263316 (Version 1)
Quarter: 2023Q4

REPORT INFORMATION
  Report Type: Spontaneous
  Country: US (occurrence: None)
  Receive Date: 20231204
  Receipt Date: 20231204
  Transmission Date: 20240110
  Serious: Yes (Disabling)
  Sender: FDA-Public Use
  Company Number: None

PATIENT
  Age: 58 Year
  Sex: Female
  Weight: 51.75 kg

DRUGS (1)
  1. CIPRO [Suspect]
     Active Substance: CIPROFLOXACIN HYDROCHLORIDE
     Indication: Urinary tract infection

REACTIONS (2)
  - Injury [None]
  - Drug hypersensitivity [None]

NARRATIVE: CASE EVENT DATE: 20190128
